FAERS Safety Report 17815171 (Version 2)
Quarter: 2020Q2

REPORT INFORMATION
  Report Type: Spontaneous
  Country: RU (occurrence: RU)
  Receive Date: 20200522
  Receipt Date: 20200602
  Transmission Date: 20200714
  Serious: Yes (Hospitalization)
  Sender: FDA-Public Use
  Company Number: NVSC2020RU137091

PATIENT
  Age: 53 Year
  Sex: Female

DRUGS (2)
  1. OXALIPLATIN. [Suspect]
     Active Substance: OXALIPLATIN
     Indication: GASTRIC CANCER
     Dosage: 256 MG(AT A DOSE OF 40 GY)
     Route: 065
     Dates: start: 20130113, end: 20200220
  2. CAPECITABINE. [Suspect]
     Active Substance: CAPECITABINE
     Indication: GASTRIC CANCER
     Dosage: 52 G(AT A DOSE OF 40 GY)
     Route: 065
     Dates: start: 20130113, end: 20130220

REACTIONS (6)
  - Alanine aminotransferase increased [Unknown]
  - Nausea [Unknown]
  - Hypersensitivity [Unknown]
  - Pruritus [Unknown]
  - Anaemia [Unknown]
  - Product use in unapproved indication [Unknown]
